FAERS Safety Report 6294804-0 (Version None)
Quarter: 2009Q3

REPORT INFORMATION
  Report Type: 
  Country: None (occurrence: None)
  Receive Date: 20090730
  Receipt Date: 20080908
  Transmission Date: 20100115
  Serious: No
  Sender: FDA-Public Use
  Company Number: 2008-1279

PATIENT
  Sex: Male

DRUGS (15)
  1. LANREOTIDE AUTOGEL (LANREOTIDE) (LANREOTIDE ACETATE) [Suspect]
     Dosage: (120 MG, 1 IN 14 D), SUBCUTANEOUS
     Route: 058
     Dates: start: 20080810
  2. SANDOSTATIN [Concomitant]
  3. SANDOSTATIN SQ (OCTREOTIDE) [Concomitant]
  4. BENADRYL [Concomitant]
  5. TYLENOL PM (TYLENOL PM) [Concomitant]
  6. EXCEDRIN (MIGRAINE) [Concomitant]
  7. HYDROCODONE /APAP (HYDROCODONE) [Concomitant]
  8. CORDRAN TAPE (FLUDROXYCORTIDE) [Concomitant]
  9. UREA CREAM (UREA) [Concomitant]
  10. KENALOG INJECTIONS (TRIAMCINOLONE ACETONIDE) [Concomitant]
  11. ADVIL [Concomitant]
  12. ALEVE [Concomitant]
  13. ASCORBIC ACID [Concomitant]
  14. ZICAM (ZICAM) [Concomitant]
  15. XELODA [Concomitant]

REACTIONS (16)
  - BLOOD GLUCOSE DECREASED [None]
  - DIARRHOEA [None]
  - DIZZINESS [None]
  - FEELING ABNORMAL [None]
  - FLATULENCE [None]
  - FLUSHING [None]
  - HAEMATOCHEZIA [None]
  - HEADACHE [None]
  - INJECTION SITE MASS [None]
  - INJECTION SITE PRURITUS [None]
  - MUSCULOSKELETAL STIFFNESS [None]
  - PAIN IN EXTREMITY [None]
  - PALPITATIONS [None]
  - PSORIASIS [None]
  - PSORIATIC ARTHROPATHY [None]
  - TREMOR [None]
